FAERS Safety Report 19679873 (Version 3)
Quarter: 2021Q3

REPORT INFORMATION
  Report Type: Spontaneous
  Country: US (occurrence: US)
  Receive Date: 20210809
  Receipt Date: 20210905
  Transmission Date: 20211014
  Serious: No
  Sender: FDA-Public Use
  Company Number: US-ORGANON-O2108USA000624

PATIENT
  Age: 14 Year
  Sex: Female
  Weight: 90.25 kg

DRUGS (1)
  1. NEXPLANON [Suspect]
     Active Substance: ETONOGESTREL
     Dosage: 68 MG EVERY 3 YEARS; RIGHT ARM
     Route: 059
     Dates: start: 20210729, end: 20210729

REACTIONS (4)
  - Product use issue [Unknown]
  - Complication of device insertion [Recovered/Resolved]
  - Product quality issue [Unknown]
  - No adverse event [Unknown]

NARRATIVE: CASE EVENT DATE: 20210729
